FAERS Safety Report 8124091-X (Version None)
Quarter: 2012Q1

REPORT INFORMATION
  Report Type: 
  Country: None (occurrence: None)
  Receive Date: 20120209
  Receipt Date: 20120206
  Transmission Date: 20120608
  Serious: No
  Sender: FDA-Public Use
  Company Number: US-PFIZER INC-2012032369

PATIENT
  Sex: Female
  Weight: 88.435 kg

DRUGS (2)
  1. ADVIL CONGESTION RELIEF [Suspect]
     Indication: SINUS HEADACHE
  2. ADVIL CONGESTION RELIEF [Suspect]
     Indication: NASOPHARYNGITIS
     Dosage: UNK, 1X/DAY
     Route: 048
     Dates: start: 20120131, end: 20120201

REACTIONS (1)
  - DRUG INEFFECTIVE [None]
